FAERS Safety Report 6034679-8 (Version None)
Quarter: 2009Q1

REPORT INFORMATION
  Report Type: 
  Country: None (occurrence: None)
  Receive Date: 20090108
  Receipt Date: 20090108
  Transmission Date: 20090719
  Serious: Yes (Other)
  Sender: FDA-Public Use
  Company Number: None

PATIENT
  Sex: Female
  Weight: 61.82 kg

DRUGS (4)
  1. FOSAMAX [Suspect]
     Dosage: 70MG TABLET 70 MG QWEEK ORAL
     Route: 048
     Dates: start: 20080820, end: 20090107
  2. LEVAQUIN [Concomitant]
  3. PREMPRO [Concomitant]
  4. VICODIN (HYDROCODONE + APAP) [Concomitant]

REACTIONS (1)
  - ABDOMINAL DISCOMFORT [None]
